FAERS Safety Report 9671268 (Version 2)
Quarter: 2014Q2

REPORT INFORMATION
  Report Type: Report from Study
  Country: US (occurrence: US)
  Receive Date: 20131106
  Receipt Date: 20140612
  Transmission Date: 20141212
  Serious: Yes (Hospitalization, Other)
  Sender: FDA-Public Use
  Company Number: US-ABBVIE-13P-163-1165280-00

PATIENT
  Age: 24 Year
  Sex: 0
  Weight: 70.37 kg

DRUGS (12)
  1. HUMIRA [Suspect]
     Indication: ANKYLOSING SPONDYLITIS
     Dosage: FREQUENCY 2.7 MONTH
     Dates: start: 20120319, end: 20120926
  2. PRENATAL VITAMIN NOS [Concomitant]
     Indication: PREGNANCY
     Route: 048
     Dates: start: 20120201, end: 20120926
  3. JUICE PLUS CAPSULERS [Concomitant]
     Indication: PRODUCT USED FOR UNKNOWN INDICATION
     Dates: start: 20120107, end: 20120131
  4. COFFEE [Concomitant]
     Indication: PRODUCT USED FOR UNKNOWN INDICATION
     Dosage: 1.5 SERVINGS PER MONTH
     Route: 048
     Dates: start: 20120107, end: 20120926
  5. CAFFEINE [Concomitant]
     Indication: PRODUCT USED FOR UNKNOWN INDICATION
     Dosage: SODA OR TEA
     Route: 048
     Dates: start: 20120107, end: 20120926
  6. CAFFEINE [Concomitant]
     Indication: PRODUCT USED FOR UNKNOWN INDICATION
     Dosage: SODA OR TEA 1 SERVING 3.5 WEEK
     Route: 048
     Dates: start: 20120403, end: 20120926
  7. TYLENOL [Concomitant]
     Indication: ANKYLOSING SPONDYLITIS
     Route: 048
     Dates: start: 20120107, end: 20120719
  8. TYLENOL [Concomitant]
     Route: 048
     Dates: start: 20120720, end: 20120926
  9. CLARITIN [Concomitant]
     Indication: NASOPHARYNGITIS
     Route: 048
     Dates: start: 20120118, end: 20120119
  10. TYLENOL COLD [Concomitant]
     Indication: NASOPHARYNGITIS
     Dosage: 1-2 PILLS EVERY 12 HOURS
     Route: 048
     Dates: start: 20120730, end: 20120808
  11. STEROIDS NOS [Concomitant]
     Indication: PRODUCT USED FOR UNKNOWN INDICATION
     Dates: start: 20120924, end: 20120924
  12. BEER [Concomitant]
     Indication: PRODUCT USED FOR UNKNOWN INDICATION
     Dates: start: 20120110, end: 20120110

REACTIONS (3)
  - Premature separation of placenta [Recovered/Resolved]
  - Dehydration [Unknown]
  - Pain [Unknown]
